FAERS Safety Report 9226191 (Version 1)
Quarter: 2013Q2

REPORT INFORMATION
  Report Type: Spontaneous
  Country: US (occurrence: US)
  Receive Date: 20130411
  Receipt Date: 20130411
  Transmission Date: 20140414
  Serious: No
  Sender: FDA-Public Use
  Company Number: US-PFIZER INC-2013113981

PATIENT
  Age: 65 Year
  Sex: Female
  Weight: 89.34 kg

DRUGS (5)
  1. NEURONTIN [Suspect]
     Indication: DIABETIC NEUROPATHY
     Dosage: 300 MG, 3X/DAY
     Route: 048
     Dates: start: 2010, end: 2010
  2. ATENOLOL [Concomitant]
     Dosage: UNK
  3. LISINOPRIL [Concomitant]
     Dosage: UNK
  4. CITALOPRAM [Concomitant]
     Dosage: UNK
  5. XANAX [Concomitant]
     Dosage: UNK

REACTIONS (1)
  - Drug ineffective [Unknown]
